FAERS Safety Report 13435692 (Version 1)
Quarter: 2017Q2

REPORT INFORMATION
  Report Type: Spontaneous
  Country: PL (occurrence: PL)
  Receive Date: 20170413
  Receipt Date: 20170413
  Transmission Date: 20170830
  Serious: Yes (Other)
  Sender: FDA-Public Use
  Company Number: PL-ASPEN PHARMA TRADING LIMITED US-AG-2016-007776

PATIENT
  Age: 82 Year
  Sex: Female

DRUGS (6)
  1. POLCORTOLON [Suspect]
     Active Substance: TRIAMCINOLONE
     Indication: MYCOSIS FUNGOIDES
     Route: 065
  2. CHLORAMBUCIL [Suspect]
     Active Substance: CHLORAMBUCIL
     Indication: MYCOSIS FUNGOIDES
     Route: 042
  3. IMURAN [Suspect]
     Active Substance: AZATHIOPRINE
     Indication: MYCOSIS FUNGOIDES
     Route: 065
  4. ENDOXAN [Suspect]
     Active Substance: CYCLOPHOSPHAMIDE
     Indication: MYCOSIS FUNGOIDES
     Route: 065
  5. ENCORTON [Suspect]
     Active Substance: PREDNISONE
     Indication: MYCOSIS FUNGOIDES
     Route: 065
  6. PUVA THERAPY [Suspect]
     Active Substance: PSORALEN
     Indication: MYCOSIS FUNGOIDES
     Route: 065

REACTIONS (5)
  - Drug ineffective [Unknown]
  - Telangiectasia [None]
  - Skin fibrosis [None]
  - Off label use [Unknown]
  - Squamous cell carcinoma [Unknown]
